FAERS Safety Report 9171655 (Version 1)
Quarter: 2013Q1

REPORT INFORMATION
  Report Type: Spontaneous
  Country: US (occurrence: None)
  Receive Date: 20130313
  Receipt Date: 20130313
  Transmission Date: 20140127
  Serious: Yes (Hospitalization)
  Sender: FDA-Public Use
  Company Number: UTC-029815

PATIENT
  Age: 74 Year
  Sex: Female

DRUGS (1)
  1. TYVASO [Suspect]
     Indication: PULMONARY ARTERIAL HYPERTENSION
     Dosage: (54 UG,4 IN 1 D)
     Route: 055
     Dates: start: 20130109, end: 2013

REACTIONS (2)
  - Oxygen saturation decreased [None]
  - Cough [None]
